FAERS Safety Report 10691936 (Version 2)
Quarter: 2015Q1

REPORT INFORMATION
  Report Type: Spontaneous
  Country: FR (occurrence: FR)
  Receive Date: 20150105
  Receipt Date: 20150105
  Transmission Date: 20150720
  Serious: Yes (Death, Life-Threatening, Hospitalization, Other)
  Sender: FDA-Public Use
  Company Number: PHHY2014FR155880

PATIENT
  Age: 67 Year
  Sex: Female
  Weight: 60 kg

DRUGS (4)
  1. MORPHINE [Concomitant]
     Active Substance: MORPHINE
     Indication: PAIN
     Dosage: 12 UG/HR
     Route: 065
  2. EXEMESTANE. [Suspect]
     Active Substance: EXEMESTANE
     Indication: BREAST CANCER METASTATIC
     Dosage: UNK
     Route: 048
  3. ACTISKENAN [Concomitant]
     Active Substance: MORPHINE SULFATE
     Indication: PAIN
     Dosage: 10 MG
     Route: 048
  4. AFINITOR [Suspect]
     Active Substance: EVEROLIMUS
     Indication: BREAST CANCER METASTATIC
     Dosage: 10 MG, QD
     Route: 048
     Dates: start: 20141003, end: 20141117

REACTIONS (14)
  - Cough [Not Recovered/Not Resolved]
  - Hypoxia [Unknown]
  - Dyspnoea [Recovered/Resolved]
  - Metastases to liver [Fatal]
  - Pleural effusion [Recovered/Resolved]
  - Chest discomfort [Recovering/Resolving]
  - Pulmonary function test abnormal [Recovered/Resolved]
  - Cholestasis [Unknown]
  - Interstitial lung disease [Recovered/Resolved]
  - Chest pain [Recovering/Resolving]
  - Hepatic failure [Fatal]
  - Pneumothorax [Recovered/Resolved]
  - Hepatic function abnormal [Fatal]
  - Cell death [Unknown]

NARRATIVE: CASE EVENT DATE: 201411
